FAERS Safety Report 11794165 (Version 2)
Quarter: 2015Q4

REPORT INFORMATION
  Report Type: Spontaneous
  Country: US (occurrence: US)
  Receive Date: 20151202
  Receipt Date: 20151230
  Transmission Date: 20160305
  Serious: No
  Sender: FDA-Public Use
  Company Number: US-BAYER-2015-476559

PATIENT
  Age: 30 Year
  Sex: Female

DRUGS (24)
  1. MIRENA [Suspect]
     Active Substance: LEVONORGESTREL
     Indication: CONTRACEPTION
     Dosage: 20 MCG/24HR, CONT
     Route: 015
     Dates: start: 2015
  2. NEURONTIN [Concomitant]
     Active Substance: GABAPENTIN
     Dosage: 1.5 DF, TID
  3. HYDRODIURIL [Concomitant]
     Active Substance: HYDROCHLOROTHIAZIDE
     Dosage: 1 DF, QD
     Route: 048
  4. CORTEF [Concomitant]
     Active Substance: HYDROCORTISONE
     Dosage: 1 DF, QD
     Route: 048
  5. SYNTHROID [Concomitant]
     Active Substance: LEVOTHYROXINE SODIUM
     Dosage: 1 DF, OM
     Route: 048
  6. K DUR [Concomitant]
     Dosage: 1 DF, BID
     Route: 048
  7. ERGOCALCIFEROL. [Concomitant]
     Active Substance: ERGOCALCIFEROL
     Dosage: 1 DF, OW
     Route: 048
  8. ZITHROMAX [Concomitant]
     Active Substance: AZITHROMYCIN DIHYDRATE
     Dosage: 4 DF, UNK
     Route: 048
  9. SINEQUAN [Concomitant]
     Active Substance: DOXEPIN HYDROCHLORIDE
     Dosage: 25 MG, NIGHTLY
     Route: 048
  10. LAMICTAL [Concomitant]
     Active Substance: LAMOTRIGINE
     Dosage: 1 DF, BID
  11. CYTOTEC [Concomitant]
     Active Substance: MISOPROSTOL
     Dosage: 1 DF, THE NIGHT BEFORE
     Dates: start: 2015
  12. KLOR-CON [Concomitant]
     Active Substance: POTASSIUM CHLORIDE
     Dosage: 1 DF, BID
     Route: 048
  13. MIRENA [Suspect]
     Active Substance: LEVONORGESTREL
     Indication: CONTRACEPTION
     Dosage: 20 MCG/24HR, CONT
     Route: 015
     Dates: start: 20150915, end: 20151118
  14. MIRENA [Suspect]
     Active Substance: LEVONORGESTREL
     Indication: MENORRHAGIA
     Dosage: 20 MCG/24HR, CONT
     Route: 015
     Dates: start: 20151118, end: 2015
  15. FLEXERIL [Concomitant]
     Active Substance: CYCLOBENZAPRINE HYDROCHLORIDE
     Dosage: 1 DF, TID AS NEEDED
     Route: 048
  16. LASIX [Concomitant]
     Active Substance: FUROSEMIDE
     Dosage: 40 MG, PRN
     Route: 048
  17. NORCO [Concomitant]
     Active Substance: ACETAMINOPHEN\HYDROCODONE BITARTRATE
     Dosage: 1 DF, EVERY 6 HOURS AS NEEDED
     Route: 048
  18. ZANAFLEX [Concomitant]
     Active Substance: TIZANIDINE HYDROCHLORIDE
     Dosage: 1-2 DF, EVERY 6 HOURS AS NEEDED
     Route: 048
  19. LEVOTHROID [Concomitant]
     Active Substance: LEVOTHYROXINE SODIUM
     Dosage: 1 DF, OM
  20. VALIUM [Concomitant]
     Active Substance: DIAZEPAM
     Dosage: 5 MG, Q8HR AS NEEDED
  21. LASIX [Concomitant]
     Active Substance: FUROSEMIDE
     Dosage: 20 MG, PRN
     Route: 048
  22. TOPROL XL [Concomitant]
     Active Substance: METOPROLOL SUCCINATE
     Dosage: 1 DF, QD
     Route: 048
  23. AMBIEN CR [Concomitant]
     Active Substance: ZOLPIDEM TARTRATE
     Dosage: 10 MG, NIGHTLY
  24. VITAMIN D [Concomitant]
     Active Substance: CHOLECALCIFEROL
     Dosage: 1 DF, OW
     Route: 048

REACTIONS (6)
  - Device deployment issue [None]
  - Device difficult to use [None]
  - Device deployment issue [None]
  - Device expulsion [None]
  - Vaginal haemorrhage [Not Recovered/Not Resolved]
  - Abdominal pain lower [None]

NARRATIVE: CASE EVENT DATE: 2015
